FAERS Safety Report 6979439-6 (Version None)
Quarter: 2010Q3

REPORT INFORMATION
  Report Type: 
  Country: None (occurrence: None)
  Receive Date: 20100910
  Receipt Date: 20100910
  Transmission Date: 20110219
  Serious: Yes (Other)
  Sender: FDA-Public Use
  Company Number: None

PATIENT
  Sex: Female

DRUGS (1)
  1. AMPYRA [Suspect]
     Dosage: 10MG TWICE DAILY BY MOUTH
     Route: 048

REACTIONS (1)
  - MULTIPLE SCLEROSIS RELAPSE [None]
